FAERS Safety Report 9858009 (Version 2)
Quarter: 2014Q1

REPORT INFORMATION
  Report Type: Spontaneous
  Country: JP (occurrence: JP)
  Receive Date: 20140131
  Receipt Date: 20140205
  Transmission Date: 20141002
  Serious: Yes (Death)
  Sender: FDA-Public Use
  Company Number: JP-JNJFOC-20140113794

PATIENT
  Age: 84 Year
  Sex: Female
  Weight: 40 kg

DRUGS (7)
  1. XARELTO [Suspect]
     Indication: CEREBROVASCULAR ACCIDENT PROPHYLAXIS
     Route: 048
  2. XARELTO [Suspect]
     Indication: ATRIAL FIBRILLATION
     Route: 048
  3. MAINTATE [Concomitant]
     Route: 048
  4. NEXIUM [Concomitant]
     Route: 048
  5. TRIMEBUTINE MALEATE [Concomitant]
     Route: 048
  6. DIFENIDOL HYDROCHLORIDE [Concomitant]
     Route: 048
  7. AMLODIPINE [Concomitant]
     Route: 048

REACTIONS (1)
  - Haemorrhagic cerebral infarction [Fatal]
